FAERS Safety Report 8090312-5 (Version None)
Quarter: 2012Q1

REPORT INFORMATION
  Report Type: 
  Country: None (occurrence: None)
  Receive Date: 20120129
  Receipt Date: 20111110
  Transmission Date: 20120608
  Serious: No
  Sender: FDA-Public Use
  Company Number: US-ABBOTT-11P-163-0873637-00

PATIENT
  Age: 40 Year
  Sex: Female

DRUGS (2)
  1. NEXIUM [Concomitant]
     Indication: PRODUCT USED FOR UNKNOWN INDICATION
  2. HUMIRA [Suspect]
     Indication: CROHN'S DISEASE
     Dosage: 160MG 12 OCT, 80MG 26 OCT, THEN 40MG EOW
     Dates: start: 20111012

REACTIONS (6)
  - FATIGUE [None]
  - VISION BLURRED [None]
  - ABDOMINAL PAIN [None]
  - NAUSEA [None]
  - FREQUENT BOWEL MOVEMENTS [None]
  - VOMITING [None]
